FAERS Safety Report 6460757-5 (Version None)
Quarter: 2009Q4

REPORT INFORMATION
  Report Type: 
  Country: None (occurrence: None)
  Receive Date: 20091130
  Receipt Date: 20091117
  Transmission Date: 20100525
  Serious: Yes (Other)
  Sender: FDA-Public Use
  Company Number: GB-PFIZER INC-2007029788

PATIENT
  Age: 58 Year
  Sex: Female
  Weight: 95 kg

DRUGS (12)
  1. CISPLATIN [Suspect]
     Indication: GASTRIC CANCER
  2. EPIRUBICIN HCL [Suspect]
     Indication: GASTRIC CANCER
  3. XELODA [Suspect]
     Indication: ADENOCARCINOMA
     Dosage: 2450 DAILY
     Route: 048
     Dates: start: 20070221, end: 20070222
  4. ENOXAPARIN SODIUM [Concomitant]
     Dosage: 40 MG, UNK
     Route: 058
     Dates: start: 20070220, end: 20070220
  5. DEXAMETHASONE [Concomitant]
     Indication: CHEMOTHERAPY
     Dosage: 8 MG, UNK
     Route: 042
     Dates: start: 20070220, end: 20070220
  6. GABAPENTIN [Concomitant]
     Indication: ANALGESIC THERAPY
     Dosage: 900 MG, UNK
     Route: 048
     Dates: start: 20070215, end: 20070215
  7. IBUPROFEN [Concomitant]
     Indication: ANALGESIC THERAPY
     Dosage: 1200 MG, UNK
     Route: 046
     Dates: start: 20070215, end: 20070215
  8. MST CONTINUS ^ASTA MEDICA^ [Concomitant]
     Indication: ANALGESIC THERAPY
     Dosage: 80 MG/KG, UNK
     Route: 048
     Dates: start: 20070215, end: 20070215
  9. OMEPRAZOLE [Concomitant]
     Indication: DYSPEPSIA
     Dosage: 20 MG, UNK
     Route: 048
     Dates: start: 20070215, end: 20070215
  10. ONDANSETRON [Concomitant]
     Indication: CHEMOTHERAPY
     Dosage: 8 MG, UNK
     Route: 042
     Dates: start: 20070220, end: 20070220
  11. PARACETAMOL [Concomitant]
     Indication: ANALGESIC THERAPY
     Dosage: 4 G, UNK
     Route: 048
     Dates: start: 20070215, end: 20070215
  12. SEVREDOL [Concomitant]
     Indication: ANALGESIC THERAPY
     Dosage: UNK
     Route: 048
     Dates: start: 20070215, end: 20070215

REACTIONS (1)
  - SWELLING FACE [None]
